FAERS Safety Report 18654162 (Version 1)
Quarter: 2020Q4

REPORT INFORMATION
  Report Type: Spontaneous
  Country: US (occurrence: US)
  Receive Date: 20201223
  Receipt Date: 20201223
  Transmission Date: 20210114
  Serious: No
  Sender: FDA-Public Use
  Company Number: US-TAKEDA-2020TUS059121

PATIENT
  Weight: 56.69 kg

DRUGS (17)
  1. GABAPENTIN. [Concomitant]
     Active Substance: GABAPENTIN
  2. BACLOFEN. [Concomitant]
     Active Substance: BACLOFEN
  3. CUVITRU [Suspect]
     Active Substance: HUMAN IMMUNOGLOBULIN G
     Indication: PRODUCT USED FOR UNKNOWN INDICATION
     Dosage: 6 GRAM, 1/WEEK
     Route: 058
     Dates: start: 20170411
  4. ACETAMINOPHEN. [Concomitant]
     Active Substance: ACETAMINOPHEN
  5. LIDOCAINE. [Concomitant]
     Active Substance: LIDOCAINE
  6. LASIX [Concomitant]
     Active Substance: FUROSEMIDE
  7. BIOTIN [Concomitant]
     Active Substance: BIOTIN
  8. DIPHENHYDRAMINE. [Concomitant]
     Active Substance: DIPHENHYDRAMINE
  9. VITAMIN D3 [Concomitant]
     Active Substance: CHOLECALCIFEROL
  10. EPINEPHRINE. [Concomitant]
     Active Substance: EPINEPHRINE
  11. METHOTREXATE. [Concomitant]
     Active Substance: METHOTREXATE
  12. ASPIRIN [ACETYLSALICYLIC ACID] [Concomitant]
     Active Substance: ASPIRIN
  13. VESICARE [Concomitant]
     Active Substance: SOLIFENACIN SUCCINATE
  14. PREDNISONE. [Concomitant]
     Active Substance: PREDNISONE
  15. FOSAMAX [Concomitant]
     Active Substance: ALENDRONATE SODIUM
  16. ATENOLOL. [Concomitant]
     Active Substance: ATENOLOL
  17. ANTACID [ALUMINIUM HYDROXIDE;MAGNESIUM HYDROXIDE] [Concomitant]

REACTIONS (1)
  - Tooth infection [Recovered/Resolved]
